FAERS Safety Report 8807327 (Version 3)
Quarter: 2013Q3

REPORT INFORMATION
  Report Type: Report from Study
  Country: US (occurrence: US)
  Receive Date: 20120925
  Receipt Date: 20130904
  Transmission Date: 20140515
  Serious: Yes (Hospitalization)
  Sender: FDA-Public Use
  Company Number: US-ROCHE-1133572

PATIENT
  Age: 89 Year
  Sex: Male

DRUGS (7)
  1. RANIBIZUMAB [Suspect]
     Indication: PRODUCT USED FOR UNKNOWN INDICATION
     Dosage: LAST DOSE PRIOR TO SAE 15/AUG/2012
     Route: 050
     Dates: start: 20100412
  2. RANIBIZUMAB [Suspect]
     Route: 050
     Dates: start: 20120815, end: 20120815
  3. RANIBIZUMAB [Suspect]
     Route: 050
     Dates: start: 20121219
  4. WARFARIN [Concomitant]
     Route: 065
     Dates: start: 20090701, end: 20120817
  5. BENDROFLUMETHIAZIDE [Concomitant]
     Route: 065
     Dates: start: 20091008
  6. FELODIPINE [Concomitant]
     Route: 065
     Dates: start: 20091201
  7. HYDROXYZINE [Concomitant]
     Route: 065
     Dates: start: 201208, end: 20120817

REACTIONS (1)
  - Cerebrovascular accident [Recovered/Resolved with Sequelae]
